FAERS Safety Report 10288450 (Version 1)
Quarter: 2014Q3

REPORT INFORMATION
  Report Type: Spontaneous
  Country: US (occurrence: US)
  Receive Date: 20140709
  Receipt Date: 20140709
  Transmission Date: 20150326
  Serious: Yes (Other)
  Sender: FDA-Public Use
  Company Number: US-TEVA-492557USA

PATIENT
  Sex: Female

DRUGS (1)
  1. PROPRANOLOL [Suspect]
     Active Substance: PROPRANOLOL\PROPRANOLOL HYDROCHLORIDE

REACTIONS (10)
  - Feeling hot [Unknown]
  - Tremor [Unknown]
  - Abasia [Unknown]
  - Cough [Recovered/Resolved]
  - Heart rate increased [Unknown]
  - Therapeutic response changed [Unknown]
  - Nervousness [Unknown]
  - Cognitive disorder [Unknown]
  - Pyrexia [Recovered/Resolved]
  - Dyspepsia [Unknown]
